FAERS Safety Report 8822381 (Version 1)
Quarter: 2012Q4

REPORT INFORMATION
  Report Type: 
  Country: CA (occurrence: CA)
  Receive Date: 20121003
  Receipt Date: 20121003
  Transmission Date: 20130627
  Serious: Yes (Other)
  Sender: FDA-Public Use
  Company Number: PHHY2012CA085453

PATIENT
  Sex: Male

DRUGS (1)
  1. DESFERAL [Suspect]
     Indication: BLOOD PYRUVIC ACID DECREASED
     Route: 058

REACTIONS (2)
  - Quadriplegia [Unknown]
  - Encephalopathy [Unknown]
